FAERS Safety Report 12691220 (Version 1)
Quarter: 2016Q3

REPORT INFORMATION
  Report Type: Spontaneous
  Country: US (occurrence: US)
  Receive Date: 20160826
  Receipt Date: 20160826
  Transmission Date: 20161109
  Serious: No
  Sender: FDA-Public Use
  Company Number: US-VIIV HEALTHCARE LIMITED-US2016119570

PATIENT
  Sex: Male

DRUGS (3)
  1. TIVICAY [Suspect]
     Active Substance: DOLUTEGRAVIR SODIUM
     Indication: HIV INFECTION
     Dosage: 50 MG, QD
     Dates: start: 201607
  2. PREZISTA [Concomitant]
     Active Substance: DARUNAVIR ETHANOLATE
  3. NORVIR [Concomitant]
     Active Substance: RITONAVIR

REACTIONS (4)
  - Proteinuria [Unknown]
  - Blood creatinine increased [Unknown]
  - Nephropathy toxic [Unknown]
  - Glycosuria [Unknown]

NARRATIVE: CASE EVENT DATE: 20160816
